FAERS Safety Report 8000374-9 (Version None)
Quarter: 2011Q4

REPORT INFORMATION
  Report Type: 
  Country: None (occurrence: None)
  Receive Date: 20111222
  Receipt Date: 20111031
  Transmission Date: 20120403
  Serious: No
  Sender: FDA-Public Use
  Company Number: US-BAYER-2011-107907

PATIENT
  Sex: Male

DRUGS (1)
  1. AVELOX [Suspect]
     Indication: VIRAL INFECTION
     Dosage: 1 DF, QD
     Route: 048
     Dates: start: 20111001, end: 20110101

REACTIONS (1)
  - RASH PAPULAR [None]
